FAERS Safety Report 24710233 (Version 1)
Quarter: 2024Q4

REPORT INFORMATION
  Report Type: Report from Study
  Country: US (occurrence: US)
  Receive Date: 20241209
  Receipt Date: 20241209
  Transmission Date: 20250115
  Serious: Yes (Death, Other)
  Sender: TAKEDA
  Company Number: US-TAKEDA-2020TUS016479

PATIENT
  Sex: Female

DRUGS (2)
  1. VEDOLIZUMAB [Suspect]
     Active Substance: VEDOLIZUMAB
     Indication: Proctitis ulcerative
     Dosage: 300 MILLIGRAM
  2. VEDOLIZUMAB [Suspect]
     Active Substance: VEDOLIZUMAB
     Indication: Colitis
     Dosage: 300 MILLIGRAM, Q6WEEKS

REACTIONS (7)
  - Death [Fatal]
  - Malaise [Unknown]
  - Diarrhoea [Unknown]
  - Illness [Unknown]
  - Product dose omission issue [Unknown]
  - Off label use [Unknown]
  - Abdominal distension [Unknown]
